FAERS Safety Report 5751677-X (Version None)
Quarter: 2008Q2

REPORT INFORMATION
  Report Type: 
  Country: None (occurrence: None)
  Receive Date: 20080528
  Receipt Date: 20080522
  Transmission Date: 20081010
  Serious: Yes (Other)
  Sender: FDA-Public Use
  Company Number: PHHY2008JP08264

PATIENT
  Age: 16 Year
  Sex: Female
  Weight: 100 kg

DRUGS (2)
  1. SANDOSTATIN [Suspect]
     Indication: PITUITARY TUMOUR BENIGN
     Dosage: 50 UG, UNK
     Route: 058
  2. BROMOCRIPTINE MESYLATE [Concomitant]
     Dosage: 2.5 MG

REACTIONS (2)
  - BLOOD GROWTH HORMONE INCREASED [None]
  - PITUITARY TUMOUR BENIGN [None]
